FAERS Safety Report 8546742-8 (Version None)
Quarter: 2012Q3

REPORT INFORMATION
  Report Type: 
  Country: None (occurrence: None)
  Receive Date: 20120727
  Receipt Date: 20120202
  Transmission Date: 20120928
  Serious: No
  Sender: FDA-Public Use
  Company Number: US-ASTRAZENECA-2012SE07289

PATIENT
  Sex: Male

DRUGS (6)
  1. SEROQUEL [Suspect]
     Route: 048
  2. SEROQUEL [Suspect]
     Route: 048
  3. SEROQUEL [Suspect]
     Indication: BIPOLAR DISORDER
     Route: 048
     Dates: start: 20120101
  4. SEROQUEL [Suspect]
     Route: 048
  5. SEROQUEL [Suspect]
     Indication: AUTISM
     Route: 048
     Dates: start: 20120101
  6. SEROQUEL [Suspect]
     Route: 048

REACTIONS (3)
  - WITHDRAWAL SYNDROME [None]
  - SELF INJURIOUS BEHAVIOUR [None]
  - OFF LABEL USE [None]
